FAERS Safety Report 14557424 (Version 1)
Quarter: 2018Q1

REPORT INFORMATION
  Report Type: Spontaneous
  Country: US (occurrence: US)
  Receive Date: 20180220
  Receipt Date: 20180220
  Transmission Date: 20180509
  Serious: Yes (Hospitalization)
  Sender: FDA-Public Use
  Company Number: None

PATIENT
  Sex: Female

DRUGS (6)
  1. ORENCIA [Suspect]
     Active Substance: ABATACEPT
     Indication: RHEUMATOID ARTHRITIS
     Dosage: DOSE - 1 SYRINGE
     Route: 058
     Dates: start: 201604
  2. CENTRUM [Concomitant]
     Active Substance: VITAMINS
  3. CALCIUM [Concomitant]
     Active Substance: CALCIUM
  4. CELEBREX [Concomitant]
     Active Substance: CELECOXIB
  5. OMEPRAZOLE. [Concomitant]
     Active Substance: OMEPRAZOLE
  6. ADVERA [Concomitant]

REACTIONS (1)
  - Drug dose omission [None]

NARRATIVE: CASE EVENT DATE: 2018
